FAERS Safety Report 7217214-8 (Version None)
Quarter: 2011Q1

REPORT INFORMATION
  Report Type: 
  Country: None (occurrence: None)
  Receive Date: 20110110
  Receipt Date: 20110106
  Transmission Date: 20110831
  Serious: Yes (Death, Other)
  Sender: FDA-Public Use
  Company Number: GB-JNJFOC-20110101348

PATIENT
  Age: 85 Year
  Sex: Female

DRUGS (3)
  1. RISPERDAL [Suspect]
     Dosage: 1 MG IN THE MORNING AND 1.5 MG IN THE EVENING
     Route: 048
  2. RISPERDAL [Suspect]
     Indication: DEMENTIA
     Route: 048
  3. RISPERDAL [Suspect]
     Route: 048

REACTIONS (11)
  - COMMUNICATION DISORDER [None]
  - CARDIAC FAILURE [None]
  - PROTRUSION TONGUE [None]
  - OFF LABEL USE [None]
  - CONDITION AGGRAVATED [None]
  - SOMNOLENCE [None]
  - ASTHENIA [None]
  - BLOOD PRESSURE DECREASED [None]
  - BODY TEMPERATURE DECREASED [None]
  - MUSCULOSKELETAL STIFFNESS [None]
  - FLUID INTAKE REDUCED [None]
